FAERS Safety Report 4716883-1 (Version None)
Quarter: 2005Q3

REPORT INFORMATION
  Report Type: 
  Country: None (occurrence: None)
  Receive Date: 20050719
  Receipt Date: 20050707
  Transmission Date: 20060218
  Serious: Yes (Hospitalization)
  Sender: FDA-Public Use
  Company Number: US-AMGEN-US141534

PATIENT
  Age: 29 Year
  Sex: Female

DRUGS (4)
  1. ENBREL [Suspect]
     Indication: RHEUMATOID ARTHRITIS
     Dates: start: 20050601
  2. METHOTREXATE [Concomitant]
     Dates: start: 20030101
  3. PREDNISONE [Concomitant]
     Dates: start: 20030101
  4. PLAQUENIL [Concomitant]
     Dates: start: 20030101

REACTIONS (7)
  - DEHYDRATION [None]
  - DIARRHOEA [None]
  - FOOD ALLERGY [None]
  - GLOSSODYNIA [None]
  - OEDEMA PERIPHERAL [None]
  - RASH [None]
  - VOMITING [None]
